FAERS Safety Report 10281846 (Version 3)
Quarter: 2014Q3

REPORT INFORMATION
  Report Type: Spontaneous
  Country: JP (occurrence: JP)
  Receive Date: 20140707
  Receipt Date: 20140717
  Transmission Date: 20150326
  Serious: Yes (Other)
  Sender: FDA-Public Use
  Company Number: JP-MUNDIPHARMA DS AND PHARMACOVIGILANCE-DEU-2014-0014459

PATIENT
  Age: 82 Year
  Sex: Male

DRUGS (14)
  1. MUCODYNE [Concomitant]
     Active Substance: CARBOCYSTEINE
     Indication: MUCOSAL INFLAMMATION
     Dosage: 1500 MG, DAILY
     Route: 048
     Dates: start: 20140306
  2. OXYCONTIN [Suspect]
     Active Substance: OXYCODONE HYDROCHLORIDE
     Indication: ORAL PAIN
     Dosage: 5 MG, BID
     Route: 048
     Dates: start: 20140401, end: 20140404
  3. CETUXIMAB [Concomitant]
     Active Substance: CETUXIMAB
  4. LENDORMIN [Concomitant]
     Active Substance: BROTIZOLAM
     Indication: LARYNGEAL CANCER STAGE III
     Dosage: 0.25 MG, DAILY
     Route: 048
     Dates: start: 20140224
  5. OXYNORM [Suspect]
     Active Substance: OXYCODONE HYDROCHLORIDE
     Indication: ORAL PAIN
  6. ASTOMIN                            /00426502/ [Concomitant]
     Indication: LARYNGEAL CANCER STAGE III
     Dosage: 30 MG, DAILY
     Route: 048
     Dates: start: 20140325, end: 2014
  7. MAGMITT [Concomitant]
     Active Substance: MAGNESIUM OXIDE
     Indication: CONSTIPATION
     Dosage: 990 MG, DAILY
     Route: 048
     Dates: start: 20140326
  8. OXYNORM [Suspect]
     Active Substance: OXYCODONE HYDROCHLORIDE
     Indication: CANCER PAIN
     Dosage: 2.5 MG, PRN
     Route: 048
     Dates: start: 20140401, end: 20140404
  9. LENDORMIN [Concomitant]
     Active Substance: BROTIZOLAM
     Indication: INSOMNIA
  10. ASTOMIN                            /00426502/ [Concomitant]
     Indication: MUCOSAL INFLAMMATION
  11. CALONAL [Concomitant]
     Active Substance: ACETAMINOPHEN
     Indication: ORAL PAIN
     Dosage: 3600 MG, DAILY
     Route: 048
     Dates: start: 20140326
  12. MINOPEN [Concomitant]
     Active Substance: MINOCYCLINE HYDROCHLORIDE
     Indication: INFECTION PROPHYLAXIS
     Dosage: 100 MG, DAILY
     Route: 048
     Dates: start: 20140303
  13. ERBITUX [Concomitant]
     Active Substance: CETUXIMAB
     Indication: PRODUCT USED FOR UNKNOWN INDICATION
     Dosage: UNK UNK, UNK
     Route: 042
     Dates: start: 20140303, end: 20140414
  14. OXYCONTIN [Suspect]
     Active Substance: OXYCODONE HYDROCHLORIDE
     Indication: CANCER PAIN
     Dosage: 5 MG, BID
     Route: 048
     Dates: start: 20140429, end: 20140430

REACTIONS (3)
  - Urinary retention [Recovered/Resolved]
  - Urinary retention [Recovered/Resolved]
  - Constipation [Not Recovered/Not Resolved]

NARRATIVE: CASE EVENT DATE: 20140404
